FAERS Safety Report 11849536 (Version 1)
Quarter: 2015Q4

REPORT INFORMATION
  Report Type: Spontaneous
  Country: GB (occurrence: GB)
  Receive Date: 20151218
  Receipt Date: 20151218
  Transmission Date: 20160305
  Serious: Yes (Other)
  Sender: FDA-Public Use
  Company Number: GB-FRESENIUS KABI-FK201303169

PATIENT
  Age: 55 Year
  Sex: Female

DRUGS (9)
  1. EVEROLIMUS [Suspect]
     Active Substance: EVEROLIMUS
     Indication: BREAST CANCER
     Dates: start: 2013
  2. EPIRUBICIN [Concomitant]
     Active Substance: EPIRUBICIN
     Dates: start: 2010
  3. ANASTROZOLE (MANUFACTURER UNKNOWN) [Suspect]
     Active Substance: ANASTROZOLE
     Indication: PRODUCT USED FOR UNKNOWN INDICATION
     Route: 065
     Dates: start: 2011
  4. CYCLOPHOSPHAMIDE. [Concomitant]
     Active Substance: CYCLOPHOSPHAMIDE
     Dates: start: 2010
  5. FLUOROURACIL. [Concomitant]
     Active Substance: FLUOROURACIL
     Dates: start: 2010
  6. ZOMETA [Suspect]
     Active Substance: ZOLEDRONIC ACID
     Indication: BREAST CANCER
     Dates: start: 2010
  7. DOCETAXEL. [Concomitant]
     Active Substance: DOCETAXEL
     Dates: start: 2012
  8. CAPECITABINE. [Concomitant]
     Active Substance: CAPECITABINE
  9. ZOMETA [Suspect]
     Active Substance: ZOLEDRONIC ACID
     Dates: start: 2010

REACTIONS (19)
  - Platelet count decreased [Unknown]
  - Dyspnoea [Unknown]
  - Rash [Recovered/Resolved]
  - Decreased appetite [Unknown]
  - Diarrhoea [Unknown]
  - Breast cancer [Unknown]
  - Neutropenia [Unknown]
  - Cough [Unknown]
  - Hypercholesterolaemia [Unknown]
  - Metastases to liver [Unknown]
  - Metastases to lung [Unknown]
  - Palmar-plantar erythrodysaesthesia syndrome [Unknown]
  - Hyperglycaemia [Unknown]
  - Mucosal inflammation [Unknown]
  - Nausea [Unknown]
  - Fatigue [Unknown]
  - Infection [Unknown]
  - Malignant neoplasm progression [Unknown]
  - Hyperlipidaemia [Recovered/Resolved]

NARRATIVE: CASE EVENT DATE: 201307
